FAERS Safety Report 8622052-5 (Version None)
Quarter: 2012Q3

REPORT INFORMATION
  Report Type: 
  Country: None (occurrence: None)
  Receive Date: 20120823
  Receipt Date: 20120823
  Transmission Date: 20120928
  Serious: Yes (Other)
  Sender: FDA-Public Use
  Company Number: None

PATIENT
  Age: 41 Year
  Sex: Female
  Weight: 108.4097 kg

DRUGS (1)
  1. DEPAKENE [Suspect]
     Indication: CONVULSION
     Dosage: 500 2 BID PO
     Route: 048
     Dates: start: 20120715, end: 20120815

REACTIONS (4)
  - ANTICONVULSANT DRUG LEVEL DECREASED [None]
  - PRODUCT QUALITY ISSUE [None]
  - CONVULSION [None]
  - PRODUCT SUBSTITUTION ISSUE [None]
